FAERS Safety Report 14473721 (Version 3)
Quarter: 2018Q2

REPORT INFORMATION
  Report Type: Spontaneous
  Country: US (occurrence: US)
  Receive Date: 20180201
  Receipt Date: 20180412
  Transmission Date: 20180711
  Serious: No
  Sender: FDA-Public Use
  Company Number: US-PFIZER INC-2018039001

PATIENT
  Age: 74 Year
  Sex: Female

DRUGS (1)
  1. ESTROPIPATE. [Suspect]
     Active Substance: ESTROPIPATE
     Dosage: UNK

REACTIONS (5)
  - Hot flush [Unknown]
  - Insomnia [Unknown]
  - Drug ineffective [Unknown]
  - Arthralgia [Unknown]
  - Drug intolerance [Unknown]
